FAERS Safety Report 9934842 (Version 1)
Quarter: 2014Q1

REPORT INFORMATION
  Report Type: Report from Study
  Country: BR (occurrence: BR)
  Receive Date: 20140228
  Receipt Date: 20140228
  Transmission Date: 20141002
  Serious: Yes (Death, Hospitalization, Other)
  Sender: FDA-Public Use
  Company Number: PHHY2014BR024674

PATIENT
  Sex: Male

DRUGS (1)
  1. DIOVAN AMLO [Suspect]
     Indication: CEREBROVASCULAR ACCIDENT
     Dosage: 1 DF (VALS 160MG, AMLO 5MG) QD (IN THE MORNING)
     Route: 048
     Dates: start: 2006

REACTIONS (4)
  - Renal failure [Fatal]
  - Lung disorder [Fatal]
  - Renal disorder [Fatal]
  - Asthenia [Fatal]
